FAERS Safety Report 18842201 (Version 2)
Quarter: 2021Q1

REPORT INFORMATION
  Report Type: Spontaneous
  Country: JP (occurrence: JP)
  Receive Date: 20210204
  Receipt Date: 20210217
  Transmission Date: 20210419
  Serious: Yes (Hospitalization, Other)
  Sender: FDA-Public Use
  Company Number: JP-ROCHE-2762689

PATIENT
  Age: 84 Year
  Sex: Female

DRUGS (1)
  1. ACTEMRA [Suspect]
     Active Substance: TOCILIZUMAB
     Indication: GIANT CELL ARTERITIS
     Route: 041
     Dates: start: 20210107, end: 20210128

REACTIONS (5)
  - Intestinal mucosal atrophy [Recovered/Resolved]
  - Intentional product use issue [Unknown]
  - Gastrointestinal wall thinning [Recovered/Resolved]
  - Off label use [Unknown]
  - Enteritis infectious [Unknown]

NARRATIVE: CASE EVENT DATE: 20210128
